FAERS Safety Report 17699709 (Version 2)
Quarter: 2020Q2

REPORT INFORMATION
  Report Type: Spontaneous
  Country: CZ (occurrence: CZ)
  Receive Date: 20200423
  Receipt Date: 20200624
  Transmission Date: 20200714
  Serious: Yes (Hospitalization, Other)
  Sender: FDA-Public Use
  Company Number: CZ-BRISTOL-MYERS SQUIBB COMPANY-BMS-2020-031513

PATIENT
  Age: 65 Year
  Sex: Male

DRUGS (1)
  1. OPDIVO [Suspect]
     Active Substance: NIVOLUMAB
     Indication: RENAL CANCER
     Dosage: 240 MILLIGRAM, Q2WK
     Route: 042
     Dates: start: 201908

REACTIONS (8)
  - Hepatitis [Recovered/Resolved]
  - Hypercalcaemia [Unknown]
  - Nephritis [Unknown]
  - Metabolic acidosis [Unknown]
  - Urinary tract infection [Recovering/Resolving]
  - Anaemia [Unknown]
  - Malignant neoplasm progression [Unknown]
  - Hyperkalaemia [Unknown]

NARRATIVE: CASE EVENT DATE: 201912
